FAERS Safety Report 15156577 (Version 1)
Quarter: 2018Q3

REPORT INFORMATION
  Report Type: Spontaneous
  Country: US (occurrence: US)
  Receive Date: 20180717
  Receipt Date: 20180717
  Transmission Date: 20181010
  Serious: No
  Sender: FDA-Public Use
  Company Number: US-BAUSCH-BL-2017-032051

PATIENT
  Sex: Female

DRUGS (1)
  1. XIFAXAN [Suspect]
     Active Substance: RIFAXIMIN
     Indication: PRODUCT USED FOR UNKNOWN INDICATION
     Route: 065

REACTIONS (13)
  - Dysphagia [Unknown]
  - Dysphonia [Unknown]
  - Insomnia [Unknown]
  - Fatigue [Unknown]
  - Abdominal pain [Unknown]
  - Dyspnoea [Unknown]
  - Chest pain [Unknown]
  - Feeling hot [Unknown]
  - Asthenia [Unknown]
  - Diarrhoea [Unknown]
  - Muscle spasms [Unknown]
  - Pruritus [Unknown]
  - Chest discomfort [Unknown]
